FAERS Safety Report 5711818-7 (Version None)
Quarter: 2008Q2

REPORT INFORMATION
  Report Type: 
  Country: None (occurrence: None)
  Receive Date: 20080421
  Receipt Date: 20080410
  Transmission Date: 20081010
  Serious: Yes (Hospitalization)
  Sender: FDA-Public Use
  Company Number: ES-PFIZER INC-2008031557

PATIENT
  Age: 65 Year
  Sex: Male

DRUGS (2)
  1. ALDACTONE [Suspect]
     Indication: CARDIAC FAILURE
     Route: 048
     Dates: start: 20071121, end: 20071127
  2. BISOPROLOL FUMARATE [Interacting]
     Indication: CARDIAC FAILURE
     Route: 048
     Dates: start: 20071121, end: 20071127

REACTIONS (4)
  - CARDIOGENIC SHOCK [None]
  - DRUG INTERACTION [None]
  - HYPERKALAEMIA [None]
  - NODAL RHYTHM [None]
